FAERS Safety Report 20278360 (Version 2)
Quarter: 2022Q1

REPORT INFORMATION
  Report Type: Report from Study
  Country: NL (occurrence: NL)
  Receive Date: 20220103
  Receipt Date: 20220119
  Transmission Date: 20220423
  Serious: Yes (Other)
  Sender: FDA-Public Use
  Company Number: NL-ABBVIE-21K-114-4072221-00

PATIENT
  Sex: Male

DRUGS (5)
  1. CARBIDOPA\LEVODOPA [Suspect]
     Active Substance: CARBIDOPA\LEVODOPA
     Indication: Parkinson^s disease
     Route: 050
     Dates: start: 20160627
  2. CARBIDOPA\LEVODOPA [Suspect]
     Active Substance: CARBIDOPA\LEVODOPA
     Dosage: MD:6.0ML, CD:4.8ML/H, ED:1.0ML, CND:3.7ML/H
     Route: 050
  3. CARBIDOPA\LEVODOPA [Suspect]
     Active Substance: CARBIDOPA\LEVODOPA
     Dosage: MD: 6.0 ML, CD: 4.6 ML/H, ED: 1.0 ML, CND: 3.5 ML/H, END:1.0ML
     Route: 050
  4. CARBIDOPA\LEVODOPA [Suspect]
     Active Substance: CARBIDOPA\LEVODOPA
     Dosage: MD 6.0 ML CD 4.7 ML/H ED 1.0 ML CND 3.6 ML/H END 1.0 ML
     Route: 050
     Dates: start: 202111
  5. PRAMIPEXOLE [Suspect]
     Active Substance: PRAMIPEXOLE
     Indication: Product used for unknown indication
     Route: 065

REACTIONS (12)
  - Pancreatic carcinoma [Not Recovered/Not Resolved]
  - Musculoskeletal stiffness [Not Recovered/Not Resolved]
  - Apraxia [Not Recovered/Not Resolved]
  - Nocturia [Not Recovered/Not Resolved]
  - Restlessness [Not Recovered/Not Resolved]
  - Upper limb fracture [Not Recovered/Not Resolved]
  - Tension [Unknown]
  - Stress [Unknown]
  - Dementia [Not Recovered/Not Resolved]
  - Hallucination [Not Recovered/Not Resolved]
  - Dyskinesia [Not Recovered/Not Resolved]
  - Freezing phenomenon [Not Recovered/Not Resolved]

NARRATIVE: CASE EVENT DATE: 20210101
